FAERS Safety Report 19014223 (Version 1)
Quarter: 2021Q1

REPORT INFORMATION
  Report Type: Report from Study
  Country: CA (occurrence: CA)
  Receive Date: 20210316
  Receipt Date: 20210316
  Transmission Date: 20210420
  Serious: Yes (Hospitalization)
  Sender: FDA-Public Use
  Company Number: CA-ROCHE-2787930

PATIENT
  Age: 70 Year
  Sex: Male

DRUGS (4)
  1. CYCLOPHOSPHAMIDE. [Suspect]
     Active Substance: CYCLOPHOSPHAMIDE
     Indication: HAEMATOLOGICAL MALIGNANCY
     Dosage: 1.75 G/M2 2 HOURS, DAY 2, DAY 3 AND DAY 4?ON 17/JAN/2021, ADMINISTERED THE LAST DOSE OF CYCLOPHOSPHA
     Route: 042
     Dates: start: 20210115
  2. RITUXIMAB. [Suspect]
     Active Substance: RITUXIMAB
     Indication: HAEMATOLOGICAL MALIGNANCY
     Dosage: ON DAY 1 AND DAY 5?ON 18/JAN/2021 ADMINISTERED THE LAST DOSE OF RITUXIMAB 767.69 MG
     Route: 042
     Dates: start: 20210114
  3. CISPLATIN. [Suspect]
     Active Substance: CISPLATIN
     Indication: HAEMATOLOGICAL MALIGNANCY
     Dosage: 2 HOURS, DAY 2, DAY 3 AND DAY 4?ON 17/JAN/2021 ADMINISTERED THE LAST DOSE OF CISPLATIN 61.6
     Route: 042
     Dates: start: 20210115
  4. ETOPOSIDE. [Suspect]
     Active Substance: ETOPOSIDE
     Indication: HAEMATOLOGICAL MALIGNANCY
     Dosage: 2 HOURS, DAY 2, DAY 3 AND DAY 4?ON 17/JAN/2021, ADMINISTERED THE LAST DOSE OF ETOPOSIDE 658 MG
     Route: 042
     Dates: start: 20210115

REACTIONS (1)
  - Oesophageal haemorrhage [Recovered/Resolved]

NARRATIVE: CASE EVENT DATE: 20210201
